FAERS Safety Report 10165236 (Version 1)
Quarter: 2014Q2

REPORT INFORMATION
  Report Type: Spontaneous
  Country: US (occurrence: US)
  Receive Date: 20140510
  Receipt Date: 20140510
  Transmission Date: 20141212
  Serious: No
  Sender: FDA-Public Use
  Company Number: US-BRISTOL-MYERS SQUIBB COMPANY-20343430

PATIENT
  Age: 58 Year
  Sex: Male
  Weight: 100.22 kg

DRUGS (3)
  1. BYDUREON [Suspect]
     Indication: TYPE 2 DIABETES MELLITUS
     Dates: start: 2013
  2. GLIMEPIRIDE [Concomitant]
     Route: 048
  3. JANUMET [Concomitant]
     Dosage: 1DF:100/1000MG
     Route: 048

REACTIONS (2)
  - Drug dispensing error [Unknown]
  - Blood glucose increased [Not Recovered/Not Resolved]
